FAERS Safety Report 5520002-1 (Version None)
Quarter: 2007Q4

REPORT INFORMATION
  Report Type: 
  Country: None (occurrence: None)
  Receive Date: 20071116
  Receipt Date: 20071108
  Transmission Date: 20080405
  Serious: Yes (Other)
  Sender: FDA-Public Use
  Company Number: CA-ASTRAZENECA-2007UW00280

PATIENT
  Age: 67 Year
  Sex: Male

DRUGS (1)
  1. XYLOCAINE TOPICAL FILM [Suspect]
     Route: 061

REACTIONS (5)
  - BURNING SENSATION [None]
  - DRUG INEFFECTIVE [None]
  - PAIN [None]
  - URINARY RETENTION [None]
  - URINARY TRACT INFECTION [None]
